FAERS Safety Report 5009825-5 (Version None)
Quarter: 2006Q2

REPORT INFORMATION
  Report Type: 
  Country: None (occurrence: None)
  Receive Date: 20060522
  Receipt Date: 20060512
  Transmission Date: 20061013
  Serious: Yes (Hospitalization)
  Sender: FDA-Public Use
  Company Number: 2006063339

PATIENT
  Age: 14 Year
  Sex: Female

DRUGS (1)
  1. GENOTROPIN [Suspect]
     Indication: ILL-DEFINED DISORDER
     Dosage: 3 MG (3 MG, 1 IN 1 D), SUBCUTANEOUS
     Route: 058

REACTIONS (1)
  - HYPERTENSION [None]
